FAERS Safety Report 9341666 (Version 1)
Quarter: 2013Q2

REPORT INFORMATION
  Report Type: Spontaneous
  Country: JP (occurrence: None)
  Receive Date: 20130606
  Receipt Date: 20130606
  Transmission Date: 20140414
  Serious: Yes (Other)
  Sender: FDA-Public Use
  Company Number: SYM-2013-04271

PATIENT
  Age: 61 Year
  Sex: Male

DRUGS (8)
  1. FLUOROURACIL [Suspect]
     Indication: METASTASES TO LIVER
     Dates: start: 20081120, end: 200901
  2. OXALIPLATIN [Suspect]
     Indication: METASTASES TO LIVER
     Dates: start: 20081120, end: 200901
  3. FOLINIC ACIDE (FOLINIC ACIDE) (FOLINIC ACID) [Concomitant]
  4. BEVACIZUMAB(BEVACIZUMAB)(BEVACIZUMAB) [Concomitant]
  5. GOSHAJINKIGAN(HERBAL EXTRACT NOS) (HERBAL EXTRACT NOS) [Concomitant]
  6. GLUTATHIONE(GLUTATHIONE) (GLUTATHIONE) [Concomitant]
  7. ACONITE [Concomitant]
  8. CALCIUM/MAGNESIUM [Concomitant]

REACTIONS (3)
  - Neuropathy peripheral [None]
  - Neutropenia [None]
  - Condition aggravated [None]
